FAERS Safety Report 22136720 (Version 1)
Quarter: 2023Q1

REPORT INFORMATION
  Report Type: Other
  Country: None (occurrence: US)
  Receive Date: 20230324
  Receipt Date: 20230324
  Transmission Date: 20230418
  Serious: Yes (Hospitalization, Other)
  Sender: FDA-Public Use
  Company Number: US-B.Braun Medical Inc.-2139523

PATIENT
  Age: 84 Year
  Sex: Male
  Weight: 97 kg

DRUGS (3)
  1. HEPARIN SODIUM IN DEXTROSE [Suspect]
     Active Substance: HEPARIN SODIUM
     Indication: Anticoagulant therapy
  2. APIXABAN [Concomitant]
     Active Substance: APIXABAN
  3. ANDEXANET ALFA [Concomitant]
     Active Substance: ANDEXANET ALFA

REACTIONS (3)
  - Drug ineffective [Unknown]
  - Inhibitory drug interaction [Unknown]
  - Procedural haemorrhage [Unknown]
